FAERS Safety Report 20763523 (Version 4)
Quarter: 2022Q3

REPORT INFORMATION
  Report Type: Spontaneous
  Country: US (occurrence: US)
  Receive Date: 20220428
  Receipt Date: 20220718
  Transmission Date: 20221027
  Serious: Yes (Other)
  Sender: FDA-Public Use
  Company Number: US-TEVA-2022-US-2030914

PATIENT
  Sex: Male

DRUGS (1)
  1. ADDERALL [Suspect]
     Active Substance: AMPHETAMINE ASPARTATE\AMPHETAMINE SULFATE\DEXTROAMPHETAMINE SACCHARATE\DEXTROAMPHETAMINE SULFATE
     Indication: Attention deficit hyperactivity disorder
     Dosage: 2 DOSAGE FORMS DAILY;
     Dates: start: 1998

REACTIONS (8)
  - Petit mal epilepsy [Unknown]
  - Confusional state [Unknown]
  - Vertigo [Unknown]
  - Nausea [Unknown]
  - Gastrointestinal disorder [Unknown]
  - Migraine [Unknown]
  - Photophobia [Unknown]
  - Therapeutic product effect variable [Unknown]

NARRATIVE: CASE EVENT DATE: 20220101
